FAERS Safety Report 5849163-1 (Version None)
Quarter: 2008Q3

REPORT INFORMATION
  Report Type: 
  Country: None (occurrence: None)
  Receive Date: 20080818
  Receipt Date: 20080818
  Transmission Date: 20090109
  Serious: Yes (Other)
  Sender: FDA-Public Use
  Company Number: None

PATIENT
  Sex: Female
  Weight: 90.7194 kg

DRUGS (1)
  1. CHANTIX [Suspect]
     Indication: SMOKING CESSATION THERAPY
     Dosage: 1 MG DAILY PO
     Route: 048
     Dates: start: 20071020, end: 20071102

REACTIONS (8)
  - BACK INJURY [None]
  - CONFUSIONAL STATE [None]
  - DISORIENTATION [None]
  - FEELING HOT [None]
  - LOSS OF CONSCIOUSNESS [None]
  - NAUSEA [None]
  - NECK INJURY [None]
  - ROAD TRAFFIC ACCIDENT [None]
